FAERS Safety Report 20808075 (Version 3)
Quarter: 2025Q2

REPORT INFORMATION
  Report Type: Spontaneous
  Country: ID (occurrence: ID)
  Receive Date: 20220510
  Receipt Date: 20250526
  Transmission Date: 20250716
  Serious: Yes (Hospitalization, Other)
  Sender: Haleon PLC
  Company Number: ID-GLAXOSMITHKLINE-IDCH2022GSK016541

PATIENT
  Age: 58 Year
  Sex: Male

DRUGS (3)
  1. DICLOFENAC SODIUM [Suspect]
     Active Substance: DICLOFENAC SODIUM
     Indication: Limb discomfort
     Route: 048
  2. SIMVASTATIN [Concomitant]
     Active Substance: SIMVASTATIN
     Indication: Dyslipidaemia
  3. AMLODIPINE [Concomitant]
     Active Substance: AMLODIPINE BESYLATE
     Indication: Hypertension

REACTIONS (12)
  - Chest pain [Recovered/Resolved]
  - Shock [Recovered/Resolved]
  - Dizziness [Recovered/Resolved]
  - Pruritus [Recovered/Resolved]
  - Kounis syndrome [Recovered/Resolved]
  - Tachycardia [Recovered/Resolved]
  - Myocardial ischaemia [Recovered/Resolved]
  - Hypoxia [Recovered/Resolved]
  - Angioedema [Recovered/Resolved]
  - Urticaria [Recovered/Resolved]
  - Dyspnoea [Recovered/Resolved]
  - Anaphylactic reaction [Recovered/Resolved]
